FAERS Safety Report 6695706-8 (Version None)
Quarter: 2010Q2

REPORT INFORMATION
  Report Type: 
  Country: None (occurrence: None)
  Receive Date: 20100426
  Receipt Date: 20100412
  Transmission Date: 20101027
  Serious: Yes (Other)
  Sender: FDA-Public Use
  Company Number: US-ASTRAZENECA-2007UW18304

PATIENT
  Age: 17814 Day
  Sex: Female

DRUGS (7)
  1. SEROQUEL [Suspect]
     Indication: BIPOLAR DISORDER
     Dosage: 25 MG TO 100 MG
     Route: 048
     Dates: start: 20020731
  2. SEROQUEL [Suspect]
     Indication: SCHIZOPHRENIA
     Dosage: 25 MG TO 100 MG
     Route: 048
     Dates: start: 20020731
  3. SEROQUEL [Suspect]
     Route: 048
     Dates: start: 20040101
  4. SEROQUEL [Suspect]
     Route: 048
     Dates: start: 20040101
  5. CAMPRAL [Concomitant]
     Dosage: 333 MG TWI TID
     Dates: start: 20051111
  6. BUSPAR [Concomitant]
     Dates: start: 20051111
  7. PAXIL [Concomitant]
     Dates: start: 20051111

REACTIONS (2)
  - NEUROPATHY PERIPHERAL [None]
  - TYPE 2 DIABETES MELLITUS [None]
